FAERS Safety Report 4700758-8 (Version None)
Quarter: 2005Q2

REPORT INFORMATION
  Report Type: 
  Country: None (occurrence: None)
  Receive Date: 20050627
  Receipt Date: 20050615
  Transmission Date: 20051028
  Serious: Yes (Other)
  Sender: FDA-Public Use
  Company Number: 2005-06-1353

PATIENT
  Age: 29 Year
  Sex: Male

DRUGS (2)
  1. SPOROSTATIN UF TABLETS [Suspect]
     Indication: FUNGAL INFECTION
     Dosage: 500 MG QD ORAL
     Route: 048
     Dates: start: 20050608, end: 20050614
  2. BETAMATHASONE DIPROPIONATE [Suspect]
     Indication: FUNGAL INFECTION
     Dosage: ONE DOSE
     Dates: start: 20050608, end: 20050608

REACTIONS (4)
  - GLAUCOMA [None]
  - HEADACHE [None]
  - NAUSEA [None]
  - PHOTOSENSITIVITY REACTION [None]
